FAERS Safety Report 13592194 (Version 1)
Quarter: 2017Q2

REPORT INFORMATION
  Report Type: Spontaneous
  Country: FR (occurrence: FR)
  Receive Date: 20170529
  Receipt Date: 20170529
  Transmission Date: 20170830
  Serious: Yes (Death, Other)
  Sender: FDA-Public Use
  Company Number: FR-BAXTER-2017BAX021750

PATIENT
  Age: 47 Year
  Sex: Female

DRUGS (25)
  1. HOLOXAN 2000 MG, POUDRE POUR USAGE PARENT?RAL [Suspect]
     Active Substance: IFOSFAMIDE
     Indication: METASTASES TO LIVER
  2. ZYMAD [Concomitant]
     Active Substance: CHOLECALCIFEROL
     Indication: PRODUCT USED FOR UNKNOWN INDICATION
     Dosage: 4 DROPS, LONG-TERM
     Route: 065
  3. LEVOTHYROX [Concomitant]
     Active Substance: LEVOTHYROXINE
     Indication: PRODUCT USED FOR UNKNOWN INDICATION
     Dosage: LONG-TERM
     Route: 065
  4. PANTOPRAZOLE [Concomitant]
     Active Substance: PANTOPRAZOLE
     Indication: PRODUCT USED FOR UNKNOWN INDICATION
     Dosage: LONG-TERM
     Route: 065
  5. AVASTIN [Concomitant]
     Active Substance: BEVACIZUMAB
     Indication: OVARIAN CANCER METASTATIC
     Route: 065
  6. HOLOXAN 2000 MG, POUDRE POUR USAGE PARENT?RAL [Suspect]
     Active Substance: IFOSFAMIDE
     Indication: OVARIAN CANCER METASTATIC
     Dosage: LYOPHILISATE FOR SOLUTION FOR INJECTION, SECOND LINE CHEMOTHERAPY
     Route: 042
     Dates: start: 20170310, end: 20170312
  7. METHYLENE BLUE. [Suspect]
     Active Substance: METHYLENE BLUE
     Dosage: INFUSION READMINISTERED OVER 24HOURS
     Route: 065
     Dates: start: 20170330
  8. CARBOPLATIN. [Concomitant]
     Active Substance: CARBOPLATIN
     Indication: OVARIAN CANCER METASTATIC
     Route: 065
  9. DOXORUBICIN TEVA [Suspect]
     Active Substance: DOXORUBICIN
     Indication: METASTASES TO LIVER
  10. PACLITAXEL. [Concomitant]
     Active Substance: PACLITAXEL
     Indication: METASTASES TO LIVER
  11. DOXORUBICIN TEVA [Suspect]
     Active Substance: DOXORUBICIN
     Indication: OVARIAN CANCER METASTATIC
     Dosage: FORM STRENGTH 50 MG:25 ML, SOLUTION FOR INJECTION , SECOND LINE CHEMOTHERAPY
     Route: 042
     Dates: start: 20170310, end: 20170312
  12. RIVOTRIL [Suspect]
     Active Substance: CLONAZEPAM
     Indication: STATUS EPILEPTICUS
     Dosage: 1 AMPOULE
     Route: 065
     Dates: start: 20170313, end: 20170313
  13. POTASSIUM [Suspect]
     Active Substance: POTASSIUM
     Indication: HYPONATRAEMIA
  14. POTASSIUM [Suspect]
     Active Substance: POTASSIUM
     Indication: HYPOKALAEMIA
     Route: 065
     Dates: start: 20170313
  15. METHYLENE BLUE. [Suspect]
     Active Substance: METHYLENE BLUE
     Indication: ADVERSE EVENT
     Dosage: 50 MG/10 ML, 1 AMPOULE, EVERY 4 HOURS PER 24 HOURS; STOPPED IN MAR2017
     Route: 065
     Dates: start: 20170328
  16. CALCIDIA [Concomitant]
     Active Substance: CALCIUM POLYCARBOPHIL
     Indication: PRODUCT USED FOR UNKNOWN INDICATION
     Dosage: LONG-TERM
     Route: 065
  17. CHLORURE DE SODIUM 0.9% VIAFLO, SOLUTION POUR PERFUSION [Suspect]
     Active Substance: SODIUM CHLORIDE
     Indication: HYPONATRAEMIA
     Route: 065
     Dates: start: 20170313
  18. KEPPRA [Suspect]
     Active Substance: LEVETIRACETAM
     Indication: ADVERSE EVENT
     Route: 065
     Dates: start: 20170313, end: 20170314
  19. ACICLOVIR [Suspect]
     Active Substance: ACYCLOVIR
     Indication: ADVERSE EVENT
     Route: 065
     Dates: start: 20170314, end: 20170317
  20. CARBOPLATIN. [Concomitant]
     Active Substance: CARBOPLATIN
     Indication: METASTASES TO LIVER
  21. AVASTIN [Concomitant]
     Active Substance: BEVACIZUMAB
     Indication: METASTASES TO LIVER
  22. CHLORURE DE SODIUM 0.9% VIAFLO, SOLUTION POUR PERFUSION [Suspect]
     Active Substance: SODIUM CHLORIDE
     Indication: HYPOKALAEMIA
     Route: 065
     Dates: start: 20170313
  23. HALOPERIDOL. [Suspect]
     Active Substance: HALOPERIDOL
     Indication: ADVERSE EVENT
     Route: 065
     Dates: start: 20170320
  24. CORTANCYL [Concomitant]
     Active Substance: PREDNISONE
     Indication: PRODUCT USED FOR UNKNOWN INDICATION
     Dosage: LONG-TERM
     Route: 065
  25. PACLITAXEL. [Concomitant]
     Active Substance: PACLITAXEL
     Indication: OVARIAN CANCER METASTATIC
     Route: 065

REACTIONS (5)
  - Hypokalaemia [Unknown]
  - Hemiplegia [Unknown]
  - Encephalopathy [Fatal]
  - Hyponatraemia [Unknown]
  - Status epilepticus [Recovered/Resolved]

NARRATIVE: CASE EVENT DATE: 20170312
